FAERS Safety Report 6191505-4 (Version None)
Quarter: 2009Q2

REPORT INFORMATION
  Report Type: 
  Country: None (occurrence: None)
  Receive Date: 20090515
  Receipt Date: 20090506
  Transmission Date: 20091009
  Serious: Yes (Death, Life-Threatening, Hospitalization, Other)
  Sender: FDA-Public Use
  Company Number: FR-JNJFOC-20080603223

PATIENT
  Age: 4 Decade
  Sex: Female
  Weight: 46 kg

DRUGS (9)
  1. REMICADE [Suspect]
     Route: 042
  2. REMICADE [Suspect]
     Route: 042
  3. REMICADE [Suspect]
     Route: 042
  4. REMICADE [Suspect]
     Indication: CROHN'S DISEASE
     Route: 042
  5. METHOTREXATE [Concomitant]
  6. IMUREL [Concomitant]
  7. SOLU-MEDROL [Concomitant]
     Indication: PAIN
     Route: 048
  8. NEXIUM [Concomitant]
     Route: 050
  9. OLICLINOMEL [Concomitant]

REACTIONS (8)
  - B-CELL LYMPHOMA [None]
  - BLADDER DISTENSION [None]
  - DEVICE RELATED INFECTION [None]
  - HEPATOSPLENOMEGALY [None]
  - INTESTINAL STENOSIS [None]
  - MENINGEAL DISORDER [None]
  - PYREXIA [None]
  - SEPSIS [None]
